FAERS Safety Report 18820088 (Version 1)
Quarter: 2021Q1

REPORT INFORMATION
  Report Type: Spontaneous
  Country: NL (occurrence: NL)
  Receive Date: 20210202
  Receipt Date: 20210202
  Transmission Date: 20210419
  Serious: Yes (Hospitalization)
  Sender: FDA-Public Use
  Company Number: NL-TEVA-2021-NL-1874255

PATIENT
  Sex: Male
  Weight: 90 kg

DRUGS (6)
  1. IRBESARTAN TABLET  75MG / BRAND NAME NOT SPECIFIED [Concomitant]
     Dosage: THERAPY START DATE:ASKED BUT UNKNOWN:THERAPY END DATE :ASKED BUT UNKNOWN
  2. FENPROCOUMON TABLET 3MG / BRAND NAME NOT SPECIFIED [Concomitant]
  3. PRAVASTATINE TABLET 10MG / BRAND NAME NOT SPECIFIED [Concomitant]
     Dosage: THERAPY START DATE:ASKED BUT UNKNOWN:THERAPY END DATE :ASKED BUT UNKNOWN
  4. OXYCODON TABLET MGA 30MG / BRAND NAME NOT SPECIFIED [Suspect]
     Active Substance: OXYCODONE
     Indication: PAIN
     Dosage: 60 MILLIGRAM DAILY;
     Dates: start: 202011, end: 20210114
  5. LEVOTHYROXINE TABLET  25UG (NATRIUM) / EUTHYROX TABLET  25MCG [Concomitant]
     Dosage: THERAPY START DATE:ASKED BUT UNKNOWN:THERAPY END DATE :ASKED BUT UNKNOWN
  6. HYDROCHLOORTHIAZIDE / BRAND NAME NOT SPECIFIED [Concomitant]
     Dosage: THERAPY START DATE:ASKED BUT UNKNOWN:THERAPY END DATE :ASKED BUT UNKNOWN

REACTIONS (1)
  - Ileus paralytic [Recovering/Resolving]
